FAERS Safety Report 26124532 (Version 1)
Quarter: 2025Q4

REPORT INFORMATION
  Report Type: Spontaneous
  Country: US (occurrence: US)
  Receive Date: 20251205
  Receipt Date: 20251205
  Transmission Date: 20260118
  Serious: No
  Sender: SANDOZ
  Company Number: US-SANDOZ-SDZ2025US091703

PATIENT
  Age: 20 Year
  Sex: Male

DRUGS (1)
  1. ADALIMUMAB [Suspect]
     Active Substance: ADALIMUMAB
     Indication: Product used for unknown indication
     Dosage: 40 MG
     Route: 065
     Dates: start: 20251128, end: 20251128

REACTIONS (2)
  - Circumstance or information capable of leading to medication error [Unknown]
  - Device malfunction [Unknown]

NARRATIVE: CASE EVENT DATE: 20251128
